FAERS Safety Report 8818343 (Version 1)
Quarter: 2012Q4

REPORT INFORMATION
  Report Type: 
  Country: US (occurrence: US)
  Receive Date: 20121001
  Receipt Date: 20121001
  Transmission Date: 20130627
  Serious: Yes (Hospitalization, Other)
  Sender: FDA-Public Use
  Company Number: US-ROCHE-731008

PATIENT
  Age: 29 None
  Sex: Male
  Weight: 70.3 kg

DRUGS (1)
  1. ACCUTANE [Suspect]
     Indication: ACNE
     Route: 065
     Dates: start: 199305, end: 199512

REACTIONS (4)
  - Colitis ulcerative [Not Recovered/Not Resolved]
  - Gastrointestinal injury [Unknown]
  - Deep vein thrombosis [Unknown]
  - Inflammatory bowel disease [Unknown]
